FAERS Safety Report 8711557 (Version 4)
Quarter: 2013Q1

REPORT INFORMATION
  Report Type: Report from Study
  Country: US (occurrence: US)
  Receive Date: 20120807
  Receipt Date: 20130129
  Transmission Date: 20140127
  Serious: Yes (Hospitalization, Other)
  Sender: FDA-Public Use
  Company Number: US-ROCHE-GNE272502

PATIENT
  Sex: Female
  Weight: 105 kg

DRUGS (4)
  1. XOLAIR [Suspect]
     Indication: ASTHMA
     Dosage: 3 INJECTION
     Route: 058
     Dates: start: 200801
  2. XOLAIR [Suspect]
     Indication: RHINITIS SEASONAL
  3. FORADIL [Concomitant]
  4. PREMARIN [Concomitant]

REACTIONS (10)
  - Asthma [Unknown]
  - Malaise [Unknown]
  - Blood immunoglobulin E increased [Unknown]
  - Drug effect decreased [Not Recovered/Not Resolved]
  - Dyspnoea [Unknown]
  - Staphylococcal infection [Recovered/Resolved]
  - Sinusitis [Not Recovered/Not Resolved]
  - Hypertension [Not Recovered/Not Resolved]
  - Dyspnoea [Not Recovered/Not Resolved]
  - Joint swelling [Not Recovered/Not Resolved]
